FAERS Safety Report 6436307-6 (Version None)
Quarter: 2009Q4

REPORT INFORMATION
  Report Type: 
  Country: None (occurrence: None)
  Receive Date: 20091111
  Receipt Date: 20091105
  Transmission Date: 20100525
  Serious: Yes (Death, Life-Threatening)
  Sender: FDA-Public Use
  Company Number: B0594904A

PATIENT
  Sex: Male
  Weight: 54.6 kg

DRUGS (13)
  1. NELARABINE [Suspect]
     Dosage: 1065MG PER DAY
     Route: 042
     Dates: start: 20090610, end: 20090614
  2. MERCAPTOPURINE [Concomitant]
     Dosage: 82MG PER DAY
     Route: 048
     Dates: start: 20090630, end: 20090713
  3. DEXAMETHASONE [Concomitant]
     Dosage: 3.25MG PER DAY
     Route: 048
     Dates: start: 20090630, end: 20090815
  4. VINCRISTINE [Concomitant]
     Dosage: 2MG PER DAY
     Dates: start: 20090630, end: 20090804
  5. DOXORUBICIN [Concomitant]
     Dosage: 49.2MG PER DAY
     Dates: start: 20090701, end: 20090721
  6. PEGASPARGASE [Concomitant]
     Dosage: 4125IU PER DAY
     Dates: start: 20090630, end: 20090811
  7. METHOTREXATE [Concomitant]
     Dosage: 12MG PER DAY
     Route: 037
     Dates: start: 20090630, end: 20090729
  8. PREDNISOLONE [Concomitant]
     Dosage: 12MG PER DAY
     Route: 037
     Dates: start: 20090630, end: 20090729
  9. CYTARABINE [Concomitant]
     Dosage: 30MG PER DAY
     Route: 037
     Dates: start: 20090630, end: 20090729
  10. FLUDARABINE [Concomitant]
     Dosage: 65MG PER DAY
     Dates: start: 20090822, end: 20090825
  11. THIOTEPA [Concomitant]
     Dosage: 275MG PER DAY
     Dates: start: 20090822, end: 20090823
  12. TOTAL BODY IRRADIATION [Concomitant]
     Dosage: 2GY PER DAY
  13. CYCLOSPORINE [Concomitant]
     Dosage: 100MG PER DAY

REACTIONS (14)
  - ABASIA [None]
  - APHASIA [None]
  - ASTHENIA [None]
  - DYSPHAGIA [None]
  - DYSPNOEA [None]
  - ENCEPHALOPATHY [None]
  - HYPOVENTILATION [None]
  - LEUKOENCEPHALOPATHY [None]
  - NEUROPATHY PERIPHERAL [None]
  - NUCLEAR MAGNETIC RESONANCE IMAGING ABNORMAL [None]
  - PARAESTHESIA [None]
  - PARALYSIS [None]
  - RESPIRATORY FAILURE [None]
  - SOMNOLENCE [None]
